FAERS Safety Report 12382153 (Version 3)
Quarter: 2016Q2

REPORT INFORMATION
  Report Type: Report from Study
  Country: US (occurrence: US)
  Receive Date: 20160518
  Receipt Date: 20160608
  Transmission Date: 20160815
  Serious: Yes (Death, Hospitalization, Other)
  Sender: FDA-Public Use
  Company Number: US-GILEAD-2016-0213969

PATIENT
  Age: 52 Year
  Sex: Male

DRUGS (3)
  1. VELETRI [Concomitant]
     Active Substance: EPOPROSTENOL
  2. AMBRISENTAN [Suspect]
     Active Substance: AMBRISENTAN
     Indication: PORTOPULMONARY HYPERTENSION
     Dosage: 5 MG, UNK
     Route: 065
     Dates: start: 20150214
  3. REVATIO [Concomitant]
     Active Substance: SILDENAFIL CITRATE

REACTIONS (9)
  - Hepatic cancer [Fatal]
  - Respiratory failure [Unknown]
  - Constipation [Unknown]
  - Intestinal perforation [Unknown]
  - Intestinal ischaemia [Unknown]
  - Pneumoperitoneum [Unknown]
  - Diffuse large B-cell lymphoma [Fatal]
  - Acute respiratory distress syndrome [Unknown]
  - Sepsis [Unknown]
